FAERS Safety Report 20074387 (Version 1)
Quarter: 2021Q4

REPORT INFORMATION
  Report Type: Spontaneous
  Country: US (occurrence: US)
  Receive Date: 20211116
  Receipt Date: 20211116
  Transmission Date: 20220303
  Serious: No
  Sender: FDA-Public Use
  Company Number: US-PFIZER INC-2018343719

PATIENT
  Age: 81 Year
  Sex: Male

DRUGS (1)
  1. LYRICA [Suspect]
     Active Substance: PREGABALIN
     Indication: Neuralgia
     Dosage: 4 DF (TAKE ONE IN AM, ONE IN PM AND TWO AT BEDTIME), DAILY
     Dates: start: 20180813

REACTIONS (1)
  - Facial nerve disorder [Unknown]
